FAERS Safety Report 9764342 (Version 2)
Quarter: 2014Q1

REPORT INFORMATION
  Report Type: Spontaneous
  Country: JP (occurrence: JP)
  Receive Date: 20131217
  Receipt Date: 20140116
  Transmission Date: 20141002
  Serious: Yes (Hospitalization)
  Sender: FDA-Public Use
  Company Number: JP-009507513-1312JPN005996

PATIENT
  Age: 44 Year
  Sex: Female

DRUGS (2)
  1. ISENTRESS TABLETS 400MG [Suspect]
     Indication: HIV INFECTION
     Dosage: 400 MG, BID
     Route: 048
     Dates: start: 20121022, end: 20121029
  2. EPZICOM [Suspect]
     Indication: HIV INFECTION
     Dosage: 300/600 MG, QD
     Route: 048
     Dates: start: 20121022, end: 20121029

REACTIONS (1)
  - Erythema multiforme [Recovered/Resolved]
